FAERS Safety Report 12651231 (Version 1)
Quarter: 2016Q3

REPORT INFORMATION
  Report Type: Spontaneous
  Country: US (occurrence: None)
  Receive Date: 20160812
  Receipt Date: 20160812
  Transmission Date: 20161109
  Serious: No
  Sender: FDA-Public Use
  Company Number: None

PATIENT
  Age: 33 Year
  Sex: Female
  Weight: 87.5 kg

DRUGS (1)
  1. ZECUITY [Suspect]
     Active Substance: SUMATRIPTAN SUCCINATE
     Indication: MIGRAINE
     Route: 062
     Dates: start: 20160501, end: 20160501

REACTIONS (4)
  - Application site erythema [None]
  - Application site pain [None]
  - Application site scar [None]
  - Application site pruritus [None]

NARRATIVE: CASE EVENT DATE: 20160501
